FAERS Safety Report 5017004-0 (Version None)
Quarter: 2006Q2

REPORT INFORMATION
  Report Type: 
  Country: None (occurrence: None)
  Receive Date: 20060526
  Receipt Date: 20060508
  Transmission Date: 20061013
  Serious: Yes (Other)
  Sender: FDA-Public Use
  Company Number: US200604003576

PATIENT
  Age: 54 Year
  Sex: Female

DRUGS (1)
  1. EVISTA [Suspect]
     Indication: OSTEOPENIA
     Dosage: ORAL
     Route: 048
     Dates: start: 19990511, end: 20060310

REACTIONS (1)
  - MEDIASTINAL ABSCESS [None]
